FAERS Safety Report 5352043-1 (Version None)
Quarter: 2007Q2

REPORT INFORMATION
  Report Type: 
  Country: None (occurrence: None)
  Receive Date: 20070607
  Receipt Date: 20070517
  Transmission Date: 20071010
  Serious: Yes (Other)
  Sender: FDA-Public Use
  Company Number: 2007VX001435

PATIENT
  Sex: Male

DRUGS (1)
  1. TASMAR [Suspect]
     Dosage: PO
     Route: 048
     Dates: start: 20070426

REACTIONS (9)
  - AGITATION [None]
  - DEPRESSION [None]
  - DYSARTHRIA [None]
  - FALL [None]
  - HALLUCINATION [None]
  - HOMICIDAL IDEATION [None]
  - MUSCULAR WEAKNESS [None]
  - SUICIDAL IDEATION [None]
  - TREMOR [None]
